FAERS Safety Report 17218531 (Version 1)
Quarter: 2020Q1

REPORT INFORMATION
  Report Type: Spontaneous
  Country: US (occurrence: US)
  Receive Date: 20191230
  Receipt Date: 20191230
  Transmission Date: 20200409
  Serious: No
  Sender: FDA-Public Use
  Company Number: None

PATIENT
  Age: 55 Year
  Sex: Female
  Weight: 49.5 kg

DRUGS (5)
  1. METRONIDAZOLE. [Suspect]
     Active Substance: METRONIDAZOLE
     Indication: PRODUCT USED FOR UNKNOWN INDICATION
     Dosage: ?          QUANTITY:1 TABLET(S);?
     Route: 048
     Dates: start: 20191010, end: 20191017
  2. FISH OIL [Concomitant]
     Active Substance: FISH OIL
  3. LISINOPRIL/HCTZ [Concomitant]
     Active Substance: HYDROCHLOROTHIAZIDE\LISINOPRIL
  4. MULTIVITAMINS [Concomitant]
     Active Substance: VITAMINS
  5. EQUATE SLEEP AID [Concomitant]
     Active Substance: DOXYLAMINE SUCCINATE

REACTIONS (7)
  - Muscle spasms [None]
  - Limb discomfort [None]
  - Nervous system disorder [None]
  - Pain in extremity [None]
  - Paraesthesia [None]
  - Muscle twitching [None]
  - Hypoaesthesia [None]

NARRATIVE: CASE EVENT DATE: 20191013
